FAERS Safety Report 4350853-0 (Version None)
Quarter: 2004Q2

REPORT INFORMATION
  Report Type: 
  Country: None (occurrence: None)
  Receive Date: 20040428
  Receipt Date: 20040422
  Transmission Date: 20050107
  Serious: Yes (Hospitalization)
  Sender: FDA-Public Use
  Company Number: 2004UW08160

PATIENT
  Age: 45 Year
  Sex: Female

DRUGS (17)
  1. DIPRIVAN [Suspect]
     Indication: SEDATION
     Dosage: VARYING DOSES
     Dates: start: 20040407, end: 20040419
  2. MULTI-VITAMINS [Concomitant]
  3. VITAMIN C [Concomitant]
  4. COLACE [Concomitant]
  5. LANTUS [Concomitant]
  6. NO MATCH [Concomitant]
  7. THYMOGLOBULIN [Concomitant]
  8. ACYCLOVIR [Concomitant]
  9. GANCICLOVIR [Concomitant]
  10. HEPARIN [Concomitant]
  11. SODIUM BICARBONATE [Concomitant]
  12. CALCIUM CHLORIDE [Concomitant]
  13. DIFLUCAN [Concomitant]
  14. ZOSYN [Concomitant]
  15. PREDNISONE [Concomitant]
  16. METOPROLOL SUCCINATE [Concomitant]
  17. ATIVAN [Concomitant]

REACTIONS (2)
  - BLOOD TRIGLYCERIDES INCREASED [None]
  - CEREBROVASCULAR ACCIDENT [None]
